FAERS Safety Report 6958446-3 (Version None)
Quarter: 2010Q3

REPORT INFORMATION
  Report Type: 
  Country: None (occurrence: None)
  Receive Date: 20100831
  Receipt Date: 20100823
  Transmission Date: 20110219
  Serious: Yes (Hospitalization, Other)
  Sender: FDA-Public Use
  Company Number: US-AMGEN-US230152

PATIENT
  Sex: Female

DRUGS (9)
  1. ENBREL [Suspect]
     Indication: RHEUMATOID ARTHRITIS
     Route: 058
     Dates: start: 20031010
  2. METHOTREXATE [Concomitant]
     Route: 065
     Dates: start: 19980813
  3. LEUCOVORIN CALCIUM [Concomitant]
     Route: 065
     Dates: start: 19980813
  4. HYDROCHLOROTHIAZIDE [Concomitant]
     Route: 065
     Dates: start: 20000913
  5. ACCUPRIL [Concomitant]
     Route: 065
     Dates: start: 20000531
  6. EVISTA [Concomitant]
     Route: 065
     Dates: start: 20021127
  7. NIFEDIPINE [Concomitant]
     Route: 065
     Dates: start: 20031105
  8. CALCIUM [Concomitant]
     Route: 065
     Dates: start: 20060417
  9. MULTI-VITAMINS [Concomitant]
     Route: 065
     Dates: start: 20060417

REACTIONS (10)
  - BLOOD CREATININE INCREASED [None]
  - EXCESSIVE GRANULATION TISSUE [None]
  - HYDRONEPHROSIS [None]
  - INJECTION SITE PAIN [None]
  - RETROPERITONEAL FIBROSIS [None]
  - SCAR [None]
  - UPPER RESPIRATORY TRACT INFECTION [None]
  - URETERIC OBSTRUCTION [None]
  - URETERIC OPERATION [None]
  - URETHRAL STENOSIS [None]
